FAERS Safety Report 10744072 (Version 1)
Quarter: 2015Q1

REPORT INFORMATION
  Report Type: Spontaneous
  Country: DK (occurrence: None)
  Receive Date: 20150126
  Receipt Date: 20150126
  Transmission Date: 20150721
  Serious: Yes (Other)
  Sender: FDA-Public Use
  Company Number: 2015DEPDK00621

PATIENT
  Age: 75 Year

DRUGS (5)
  1. DEPOCYT(E) (CYTARABINE) LIPOSOME INJECTABLE SUSPENSION [Suspect]
     Active Substance: CYTARABINE
     Indication: CENTRAL NERVOUS SYSTEM LYMPHOMA
     Dosage: DAY 2 TREATMENT PHASE A1
     Route: 037
  2. RITUXIMAB [Concomitant]
     Active Substance: RITUXIMAB
  3. METHOTREXATE (METHOTREXATE SODIUM) [Concomitant]
     Active Substance: METHOTREXATE SODIUM
  4. IFOSFAMIDE. [Concomitant]
     Active Substance: IFOSFAMIDE
  5. DEXAMETHASONE (DEXAMETHASONE SODIUM PHOSPHATE) [Concomitant]

REACTIONS (6)
  - Cauda equina syndrome [None]
  - Brain injury [None]
  - Ataxia [None]
  - Urinary incontinence [None]
  - Faecal incontinence [None]
  - Somnolence [None]
